FAERS Safety Report 6089153-X (Version None)
Quarter: 2009Q1

REPORT INFORMATION
  Report Type: 
  Country: None (occurrence: None)
  Receive Date: 20090224
  Receipt Date: 20090216
  Transmission Date: 20090719
  Serious: Yes (Other)
  Sender: FDA-Public Use
  Company Number: DE-TEVA-185613ISR

PATIENT
  Age: 67 Year
  Sex: Female

DRUGS (4)
  1. ALENDRONATE SODIUM [Suspect]
     Route: 048
  2. LEKOVIT CA [Concomitant]
     Route: 048
  3. LATANOPROST [Concomitant]
  4. BRINZOLAMIDE [Concomitant]

REACTIONS (2)
  - CAROTID ARTERY DISEASE [None]
  - VISUAL FIELD DEFECT [None]
